FAERS Safety Report 9202728 (Version 1)
Quarter: 2013Q2

REPORT INFORMATION
  Report Type: Spontaneous
  Country: GB (occurrence: GB)
  Receive Date: 20130401
  Receipt Date: 20130401
  Transmission Date: 20140414
  Serious: Yes (Life-Threatening)
  Sender: FDA-Public Use
  Company Number: GB-PFIZER INC-2013102743

PATIENT
  Age: 38 Year
  Sex: Female

DRUGS (3)
  1. LYRICA [Suspect]
     Indication: ANXIETY
     Dosage: 75 MG, 2X/DAY
     Route: 048
     Dates: start: 20121129, end: 20121205
  2. MIRTAZAPINE [Concomitant]
     Indication: DEPRESSION
     Dosage: ONGOING
     Route: 048
     Dates: start: 20120404
  3. PROMETHAZINE [Concomitant]
     Dosage: ONGOING
     Dates: start: 20121129

REACTIONS (3)
  - Grand mal convulsion [Recovered/Resolved]
  - Head injury [Recovered/Resolved]
  - Loss of consciousness [Recovered/Resolved]
